FAERS Safety Report 24558494 (Version 2)
Quarter: 2024Q4

REPORT INFORMATION
  Report Type: Spontaneous
  Country: DE (occurrence: DE)
  Receive Date: 20241029
  Receipt Date: 20241108
  Transmission Date: 20250114
  Serious: No
  Sender: Unknown Manufacturer
  Company Number: DE-MIRUM PHARMACEUTICALS, INC.-DE-MIR-24-00950

PATIENT

DRUGS (1)
  1. LIVMARLI [Suspect]
     Active Substance: MARALIXIBAT CHLORIDE
     Indication: Alagille syndrome
     Dosage: UNK
     Route: 065
     Dates: start: 20240819

REACTIONS (5)
  - Transplant evaluation [Unknown]
  - Pruritus [Recovering/Resolving]
  - Bile acids increased [Unknown]
  - Blood bilirubin increased [Unknown]
  - Therapeutic product effect decreased [Unknown]

NARRATIVE: CASE EVENT DATE: 20240101
